FAERS Safety Report 7128625-3 (Version None)
Quarter: 2010Q4

REPORT INFORMATION
  Report Type: 
  Country: None (occurrence: None)
  Receive Date: 20101130
  Receipt Date: 20101116
  Transmission Date: 20110411
  Serious: Yes (Hospitalization, Other)
  Sender: FDA-Public Use
  Company Number: NL-MEDIMMUNE-MEDI-0011714

PATIENT
  Sex: Male
  Weight: 2.7 kg

DRUGS (2)
  1. SYNAGIS [Suspect]
     Route: 051
     Dates: start: 20101001, end: 20101001
  2. SYNAGIS [Suspect]
     Route: 051
     Dates: start: 20101101, end: 20101101

REACTIONS (3)
  - CARDIAC FAILURE [None]
  - SHUNT MALFUNCTION [None]
  - THROMBOSIS IN DEVICE [None]
